FAERS Safety Report 17875461 (Version 1)
Quarter: 2020Q2

REPORT INFORMATION
  Report Type: Spontaneous
  Country: US (occurrence: US)
  Receive Date: 20200609
  Receipt Date: 20200609
  Transmission Date: 20200714
  Serious: Yes (Hospitalization)
  Sender: FDA-Public Use
  Company Number: None

PATIENT
  Age: 57 Year
  Sex: Male
  Weight: 54.86 kg

DRUGS (14)
  1. NARCAN 4MG/0.1 ML [Concomitant]
  2. PANTOPRAZOLE 40 MG [Concomitant]
     Active Substance: PANTOPRAZOLE SODIUM
  3. PREDNISONE 10 MG [Concomitant]
     Active Substance: PREDNISONE
  4. CALCIUM-VITAMIN D3 600MG-400UNITS [Concomitant]
  5. OXYCODONE 20 MG [Concomitant]
  6. PROCHLORPERAZINE 10 MG [Concomitant]
  7. FISH OIL CONCENTRATE 1000 MG [Concomitant]
  8. LUPRON 45 MG IM [Concomitant]
  9. FLOMAX 0.4 MG [Concomitant]
  10. DAILY MVI 1 TAB [Concomitant]
  11. ZOFRAN 8 MG [Concomitant]
  12. ABIRATERONE ACEETATE [Suspect]
     Active Substance: ABIRATERONE ACETATE
     Indication: PROSTATE CANCER
     Route: 048
     Dates: start: 20200331
  13. IMODIUM A-D 2 MG PRN [Concomitant]
  14. XANAX [Concomitant]
     Active Substance: ALPRAZOLAM

REACTIONS (4)
  - Cerebral haemorrhage [None]
  - Thrombosis [None]
  - Confusional state [None]
  - Overdose [None]

NARRATIVE: CASE EVENT DATE: 20200603
